FAERS Safety Report 17859705 (Version 1)
Quarter: 2020Q2

REPORT INFORMATION
  Report Type: Spontaneous
  Country: US (occurrence: US)
  Receive Date: 20200604
  Receipt Date: 20200604
  Transmission Date: 20200714
  Serious: No
  Sender: FDA-Public Use
  Company Number: US-PFIZER INC-2020217450

PATIENT
  Age: 40 Year
  Sex: Female
  Weight: 72.12 kg

DRUGS (3)
  1. CELEBREX [Suspect]
     Active Substance: CELECOXIB
     Indication: JUVENILE IDIOPATHIC ARTHRITIS
     Dosage: UNK
  2. CELECOXIB. [Suspect]
     Active Substance: CELECOXIB
     Indication: JUVENILE IDIOPATHIC ARTHRITIS
     Dosage: 200 MG, DAILY
     Route: 048
  3. TYLENOL [Concomitant]
     Active Substance: ACETAMINOPHEN
     Dosage: UNK

REACTIONS (2)
  - Drug ineffective [Unknown]
  - Intentional product use issue [Unknown]
